FAERS Safety Report 7044143-5 (Version None)
Quarter: 2010Q4

REPORT INFORMATION
  Report Type: 
  Country: None (occurrence: None)
  Receive Date: 20101013
  Receipt Date: 20101004
  Transmission Date: 20110411
  Serious: No
  Sender: FDA-Public Use
  Company Number: US-PFIZER INC-2010127563

PATIENT
  Sex: Female
  Weight: 61.224 kg

DRUGS (3)
  1. ZOLOFT [Suspect]
     Indication: ANXIETY
     Dosage: 100 MG, DAILY
     Route: 048
  2. PREMPRO [Suspect]
     Indication: HORMONE REPLACEMENT THERAPY
     Dosage: 0.45/1.5 MG, ONCE DAILY
     Route: 048
  3. TETRACYCLINE [Suspect]
     Indication: ACNE
     Dosage: 500 MG, DAILY
     Route: 048

REACTIONS (3)
  - ALOPECIA [None]
  - ANXIETY [None]
  - DRUG INEFFECTIVE [None]
